FAERS Safety Report 21418893 (Version 2)
Quarter: 2023Q2

REPORT INFORMATION
  Report Type: Report from Study
  Country: US (occurrence: None)
  Receive Date: 20221006
  Receipt Date: 20230529
  Transmission Date: 20230722
  Serious: Yes (Hospitalization)
  Sender: FDA-Public Use
  Company Number: US-ROCHE-3131817

PATIENT
  Age: 59 Year
  Sex: Female
  Weight: 52.4 kg

DRUGS (41)
  1. RITUXIMAB [Suspect]
     Active Substance: RITUXIMAB
     Indication: Follicular lymphoma
     Dosage: DATE OF LAST DOSE PRIOR TO EVENT:  9/JUN/2022,
     Route: 042
     Dates: start: 20220512, end: 20220609
  2. RITUXIMAB [Suspect]
     Active Substance: RITUXIMAB
     Indication: Follicular lymphoma
     Route: 042
     Dates: start: 20220412, end: 20220426
  3. RITUXIMAB [Suspect]
     Active Substance: RITUXIMAB
     Route: 042
     Dates: start: 20220811
  4. EPCORITAMAB [Suspect]
     Active Substance: EPCORITAMAB
     Indication: Follicular lymphoma
     Dosage: PRIMING DOS. INTERMEDIATE DOSE OF 0.8 MG ON 19/APR/2022 AND THE FULL DOSE OF 48 MG OF EPCORITAMAB ON
     Route: 058
     Dates: start: 20220412, end: 20220412
  5. EPCORITAMAB [Suspect]
     Active Substance: EPCORITAMAB
     Dosage: INTERMEDIATE DOSE: 0.8 MG ON 19-APR-2022
     Route: 058
     Dates: start: 20220519, end: 20220526
  6. EPCORITAMAB [Suspect]
     Active Substance: EPCORITAMAB
     Dosage: RE-INTERMEDIATE DOSE: 0.8 MG 18/AUG/2022
     Route: 058
     Dates: start: 20220811, end: 20220811
  7. LENALIDOMIDE [Suspect]
     Active Substance: LENALIDOMIDE
     Indication: Follicular lymphoma
     Dosage: DATE OF LAST DOSE PRIOR TO EVENT: 1/JUN/2022.
     Route: 048
     Dates: start: 20220412, end: 20220502
  8. LENALIDOMIDE [Suspect]
     Active Substance: LENALIDOMIDE
     Route: 048
     Dates: start: 20220609, end: 20220625
  9. LENALIDOMIDE [Suspect]
     Active Substance: LENALIDOMIDE
     Route: 048
     Dates: start: 20220512, end: 20220601
  10. LENALIDOMIDE [Suspect]
     Active Substance: LENALIDOMIDE
     Route: 048
     Dates: start: 20220811, end: 20220831
  11. DIPHENHYDRAMINE HYDROCHLORIDE [Concomitant]
     Active Substance: DIPHENHYDRAMINE HYDROCHLORIDE
     Dosage: 50 MG ON 11/AUG/2022.
     Route: 048
     Dates: start: 20220609, end: 20220811
  12. DIPHENHYDRAMINE HYDROCHLORIDE [Concomitant]
     Active Substance: DIPHENHYDRAMINE HYDROCHLORIDE
     Route: 048
  13. ACETAMINOPHEN [Concomitant]
     Active Substance: ACETAMINOPHEN
     Route: 048
     Dates: start: 20220609, end: 20220811
  14. ACYCLOVIR [Concomitant]
     Active Substance: ACYCLOVIR
     Dates: start: 20220425
  15. ASPIRIN [Concomitant]
     Active Substance: ASPIRIN
     Dates: start: 20220427, end: 20230301
  16. ATOVAQUONE [Concomitant]
     Active Substance: ATOVAQUONE
     Dates: start: 20220426, end: 20230302
  17. CLONAZEPAM [Concomitant]
     Active Substance: CLONAZEPAM
     Route: 065
     Dates: start: 20211223
  18. DESIPRAMINE [Concomitant]
     Active Substance: DESIPRAMINE
     Dates: start: 20211220
  19. ERGOCALCIFEROL [Concomitant]
     Active Substance: ERGOCALCIFEROL
     Dates: start: 20220307
  20. FAMOTIDINE [Concomitant]
     Active Substance: FAMOTIDINE
     Dates: start: 2021
  21. PAROXETINE [Concomitant]
     Active Substance: PAROXETINE
     Dates: start: 20220317
  22. VALACYCLOVIR [Concomitant]
     Active Substance: VALACYCLOVIR HYDROCHLORIDE
     Dates: start: 20220428
  23. ZOFRAN [Concomitant]
     Active Substance: ONDANSETRON HYDROCHLORIDE
     Dates: start: 20220412, end: 20220811
  24. TOZINAMERAN [Concomitant]
     Active Substance: TOZINAMERAN
     Indication: COVID-19 prophylaxis
     Dosage: COVID-19 PFIZER VACCINE, ONCE, FIRST DOSE, 31/MAR/2021, RECEIVED VACCINATION WITH COVID-19 PFIZER VA
     Route: 030
     Dates: start: 20210306
  25. PREDNISONE [Concomitant]
     Active Substance: PREDNISONE
     Route: 048
     Dates: start: 20220609, end: 20220814
  26. PREDNISONE [Concomitant]
     Active Substance: PREDNISONE
     Route: 048
     Dates: start: 20220811, end: 20220814
  27. APIXABAN [Concomitant]
     Active Substance: APIXABAN
     Dates: start: 20220630, end: 20220703
  28. HYDROCORTISONE SODIUM SUCCINATE [Concomitant]
     Active Substance: HYDROCORTISONE SODIUM SUCCINATE
     Dates: start: 20220609, end: 20220811
  29. DEXAMETHASONE [Concomitant]
     Active Substance: DEXAMETHASONE
     Dates: start: 20220628, end: 20220701
  30. BENZONATATE [Concomitant]
     Active Substance: BENZONATATE
     Dates: start: 20220613, end: 20220703
  31. COMPAZINE [Concomitant]
     Active Substance: PROCHLORPERAZINE MALEATE
     Dates: start: 20220626, end: 20220703
  32. CHLORHEXIDINE GLUCONATE [Concomitant]
     Active Substance: CHLORHEXIDINE GLUCONATE
     Dates: start: 20220627, end: 20220630
  33. CILGAVIMAB\TIXAGEVIMAB [Concomitant]
     Active Substance: CILGAVIMAB\TIXAGEVIMAB
     Dates: start: 20220714, end: 20220714
  34. FDG SCAN [Concomitant]
     Dates: start: 20220609, end: 20220809
  35. ENOXAPARIN [Concomitant]
     Active Substance: ENOXAPARIN
     Dates: start: 20220630, end: 20220630
  36. METAMUCIL [Concomitant]
     Active Substance: PLANTAGO SEED
     Dates: start: 20220627, end: 20220629
  37. REMIFENTANIL [Concomitant]
     Active Substance: REMIFENTANIL
     Dates: start: 20220629, end: 20220629
  38. ROCURONIUM [Concomitant]
     Active Substance: ROCURONIUM BROMIDE
     Dates: start: 20220629, end: 20220629
  39. SIMETHICONE (DIMETHICONE) [Concomitant]
     Active Substance: DIMETHICONE
     Dates: start: 20220630, end: 20220703
  40. LIDOCAINE [Concomitant]
     Active Substance: LIDOCAINE
     Dates: start: 20220629, end: 20220629
  41. FLONASE [Concomitant]
     Active Substance: FLUTICASONE PROPIONATE
     Dates: start: 20220622

REACTIONS (1)
  - COVID-19 pneumonia [Recovered/Resolved]

NARRATIVE: CASE EVENT DATE: 20220622
